FAERS Safety Report 8433197 (Version 12)
Quarter: 2013Q3

REPORT INFORMATION
  Report Type: Report from Study
  Country: ZA (occurrence: ZA)
  Receive Date: 20120229
  Receipt Date: 20130719
  Transmission Date: 20140515
  Serious: Yes (Death, Hospitalization)
  Sender: FDA-Public Use
  Company Number: ZA-BRISTOL-MYERS SQUIBB COMPANY-16344608

PATIENT
  Age: 62 Year
  Sex: Male

DRUGS (7)
  1. SAXAGLIPTIN [Suspect]
     Indication: TYPE 2 DIABETES MELLITUS
     Dates: start: 20101207, end: 20111218
  2. METFORMIN HCL [Suspect]
     Indication: TYPE 2 DIABETES MELLITUS
     Dosage: UNK-23DEC11,1000MG?24DEC-25DEC11,500MG
     Dates: end: 20111225
  3. ACTRAPHANE [Suspect]
     Indication: TYPE 2 DIABETES MELLITUS
     Dosage: UNK-07DEC10,92IU?08DEC10-14JUN11,82IU?15JUN-17DEC11,92IU/U?19-25DEC11,80IU/U?29DEC11-07JAN12
     Dates: end: 20120107
  4. NOVORAPID [Suspect]
     Indication: TYPE 2 DIABETES MELLITUS
     Dosage: 19DEC11-19DEC11:10 IU/UNITS?26DEC11-04JAN12:178 IU/UNITS
     Dates: start: 20111219
  5. ASPIRIN [Concomitant]
     Dosage: 1DF:{100MG
  6. ATIVAN [Concomitant]
     Dosage: 18-18DEC11:1MG,25-25DEC11:.5MG
     Dates: start: 20111218
  7. MAXOLON [Concomitant]
     Dates: start: 20111218, end: 20111218

REACTIONS (2)
  - HIV infection [Fatal]
  - Pneumocystis jirovecii pneumonia [Not Recovered/Not Resolved]
